FAERS Safety Report 6288244-8 (Version None)
Quarter: 2009Q3

REPORT INFORMATION
  Report Type: 
  Country: None (occurrence: None)
  Receive Date: 20090729
  Receipt Date: 20071228
  Transmission Date: 20100115
  Serious: Yes (Hospitalization, Other)
  Sender: FDA-Public Use
  Company Number: US-ASTRAZENECA-2006UW23035

PATIENT
  Age: 17506 Day
  Sex: Male
  Weight: 126.1 kg

DRUGS (16)
  1. SEROQUEL [Suspect]
     Indication: SCHIZOPHRENIA
     Route: 048
     Dates: start: 19980901, end: 20000101
  2. SEROQUEL [Suspect]
     Indication: SLEEP DISORDER
     Route: 048
     Dates: start: 19980901, end: 20000101
  3. SEROQUEL [Suspect]
     Dosage: 50 MG TO 600 MG DAILY
     Route: 048
     Dates: start: 19990625, end: 20011001
  4. SEROQUEL [Suspect]
     Dosage: 50 MG TO 600 MG DAILY
     Route: 048
     Dates: start: 19990625, end: 20011001
  5. TEMAZEPAM [Concomitant]
     Indication: SLEEP DISORDER
     Dates: start: 20000707
  6. ATIVAN [Concomitant]
     Indication: ANXIETY
     Dosage: STRENGTH-1 MG, DOSE- THREE TIMES A DAY, AS REQUIRED
     Route: 048
     Dates: start: 19980730
  7. NAVANE [Concomitant]
     Dosage: 20 MG TO 40 MG AT NIGHT
     Dates: start: 19980730
  8. OLANZAPINE [Concomitant]
     Dates: start: 19990318
  9. TEGRETOL [Concomitant]
     Indication: IMPULSIVE BEHAVIOUR
     Dosage: 400 MG TO 800 MG DAILY
     Dates: start: 19830101
  10. TEGRETOL [Concomitant]
     Indication: ANGER
     Dosage: 400 MG TO 800 MG DAILY
     Dates: start: 19830101
  11. RISPERIDONE [Concomitant]
     Dates: start: 20040618
  12. VALPROATE SODIUM [Concomitant]
     Indication: CONVULSION
     Dosage: 2000 MG TO 2250 MG DAILY
     Dates: start: 20000707
  13. COGENTIN [Concomitant]
     Dosage: 2 MG TO 4 MG DAILY
     Dates: start: 19870101
  14. PROPRANOLOL HYDROCHLORIDE [Concomitant]
     Indication: HYPERTENSION
     Dosage: 40 MG TO 80 MG DAILY
     Dates: start: 19990625
  15. ATENOLOL [Concomitant]
     Indication: HYPERTENSION
     Dates: start: 19980730
  16. METHOCARBAMOL [Concomitant]
     Dosage: STRENGTH- 750 MG, DOSE- THREE TIMES A DAY, AS REQUIRED
     Dates: start: 20010927

REACTIONS (3)
  - DIABETES MELLITUS [None]
  - DIABETIC NEUROPATHY [None]
  - TYPE 2 DIABETES MELLITUS [None]
